FAERS Safety Report 9056289 (Version 4)
Quarter: 2013Q2

REPORT INFORMATION
  Report Type: Spontaneous
  Country: US (occurrence: US)
  Receive Date: 20130205
  Receipt Date: 20130522
  Transmission Date: 20140414
  Serious: Yes (Hospitalization)
  Sender: FDA-Public Use
  Company Number: US-GILEAD-2013-0068802

PATIENT
  Age: 69 Year
  Sex: Female

DRUGS (1)
  1. LETAIRIS [Suspect]
     Indication: PULMONARY ARTERIAL HYPERTENSION
     Dosage: 10 MG, QD
     Dates: start: 20120709

REACTIONS (5)
  - Cardiac arrest [Unknown]
  - Dehydration [Unknown]
  - Blood pressure decreased [Unknown]
  - Muscle atrophy [Unknown]
  - Nasal congestion [Unknown]
